FAERS Safety Report 10329604 (Version 3)
Quarter: 2016Q2

REPORT INFORMATION
  Report Type: Report from Study
  Country: ES (occurrence: ES)
  Receive Date: 20140721
  Receipt Date: 20160527
  Transmission Date: 20160815
  Serious: Yes (Death)
  Sender: FDA-Public Use
  Company Number: ES-MERCK-1407ESP007815

PATIENT
  Age: 57 Year
  Sex: Male

DRUGS (11)
  1. RIBAVIRIN. [Suspect]
     Active Substance: RIBAVIRIN
     Dosage: 400 MG, TWO TIMES PER DAY
     Route: 048
     Dates: start: 20130930, end: 20140103
  2. ANAGASTRA [Concomitant]
     Active Substance: PANTOPRAZOLE SODIUM
     Dosage: 40 MG, ONCE DAILY
     Route: 048
     Dates: start: 20100715
  3. SUMIAL [Concomitant]
     Active Substance: PROPRANOLOL HYDROCHLORIDE
     Dosage: 10 MG, 2 TIMES PER DAY
     Route: 048
     Dates: start: 20100816
  4. IDEOS [Concomitant]
     Active Substance: CALCIUM CARBONATE\CHOLECALCIFEROL
     Dosage: 1250 MG, ONCE A DAY
     Route: 048
     Dates: start: 20100824
  5. ADIRO [Suspect]
     Active Substance: ASPIRIN
     Dosage: 100 MG, ONCE DAILY
     Route: 048
     Dates: start: 20100824
  6. MODIGRAF [Concomitant]
     Active Substance: TACROLIMUS
     Dosage: 0,1 MG, ONCE DAILY
     Dates: start: 20100715
  7. ARANESP [Concomitant]
     Active Substance: DARBEPOETIN ALFA
     Dosage: 80 MCG, ONCE WEEKLY
     Dates: start: 20131202
  8. LANTUS [Concomitant]
     Active Substance: INSULIN GLARGINE
     Dosage: 10  UI, ONCE A DAY
     Route: 058
     Dates: start: 20100723
  9. LEVOTHROID [Concomitant]
     Active Substance: LEVOTHYROXINE SODIUM
     Dosage: 100 MCG, ONCE A DAY
     Dates: start: 20100715
  10. PEGINTRON [Suspect]
     Active Substance: PEGINTERFERON ALFA-2B
     Dosage: 100 MCG, ONCE A WEEK
     Route: 058
     Dates: start: 20130930, end: 20140103
  11. TELAPREVIR [Suspect]
     Active Substance: TELAPREVIR
     Dosage: 1125 MG, 2 TIMES PER DAY
     Route: 048
     Dates: start: 20130930, end: 20131223

REACTIONS (1)
  - Anaemia [Fatal]

NARRATIVE: CASE EVENT DATE: 20131205
